FAERS Safety Report 9152473 (Version 2)
Quarter: 2013Q3

REPORT INFORMATION
  Report Type: Spontaneous
  Country: US (occurrence: US)
  Receive Date: 20130308
  Receipt Date: 20130807
  Transmission Date: 20140515
  Serious: Yes (Hospitalization, Other)
  Sender: FDA-Public Use
  Company Number: US-009507513-1303USA003906

PATIENT
  Sex: Male

DRUGS (6)
  1. FOSAMAX [Suspect]
     Indication: OSTEOPENIA
     Dosage: 70 MG, UNK
     Route: 048
  2. ALENDRONATE SODIUM [Suspect]
     Indication: OSTEOPOROSIS
     Dosage: 70 MG, QW
     Route: 048
  3. ALENDRONATE SODIUM [Suspect]
     Indication: OSTEOPENIA
  4. LORATADINE [Concomitant]
     Indication: HYPERSENSITIVITY
     Dosage: UNK
     Dates: end: 20120111
  5. CETIRIZINE HYDROCHLORIDE [Concomitant]
     Indication: HYPERSENSITIVITY
     Dosage: 10 MG, UNK
     Dates: start: 20120111
  6. NICOTINE [Concomitant]
     Route: 062

REACTIONS (54)
  - Hip fracture [Unknown]
  - Intramedullary rod insertion [Unknown]
  - Tibia fracture [Unknown]
  - Hyponatraemia [Unknown]
  - Inappropriate antidiuretic hormone secretion [Unknown]
  - Chronic obstructive pulmonary disease [Unknown]
  - Hemiparesis [Unknown]
  - Respiratory failure [Unknown]
  - Pulmonary embolism [Unknown]
  - Clostridium difficile colitis [Unknown]
  - Hypomagnesaemia [Unknown]
  - Hyponatraemia [Unknown]
  - Hypokalaemia [Recovered/Resolved]
  - Hypoxia [Unknown]
  - Unresponsive to stimuli [Unknown]
  - Acidosis [Unknown]
  - Pneumonia [Recovering/Resolving]
  - Leukocytosis [Unknown]
  - Tachycardia [Recovered/Resolved]
  - Supraventricular tachycardia [Recovered/Resolved]
  - Thrombocytopenia [Unknown]
  - Fall [Unknown]
  - Rib fracture [Unknown]
  - Fracture [Unknown]
  - Low turnover osteopathy [Unknown]
  - Limb injury [Unknown]
  - Stress fracture [Unknown]
  - Asthma [Unknown]
  - Wound [Recovering/Resolving]
  - Muscle contracture [Unknown]
  - Cognitive disorder [Recovering/Resolving]
  - Malnutrition [Unknown]
  - Myositis [Unknown]
  - Joint effusion [Unknown]
  - Arthropathy [Unknown]
  - Deep vein thrombosis [Not Recovered/Not Resolved]
  - Atrophy [Unknown]
  - Patella fracture [Unknown]
  - Troponin increased [Unknown]
  - Agitation [Unknown]
  - Anxiety [Unknown]
  - Blood cholesterol increased [Unknown]
  - Decubitus ulcer [Unknown]
  - Chronic obstructive pulmonary disease [Unknown]
  - Adenotonsillectomy [Unknown]
  - Pilonidal sinus repair [Unknown]
  - Hypertension [Unknown]
  - Cerebral small vessel ischaemic disease [Unknown]
  - Clostridial infection [Unknown]
  - Pain [Unknown]
  - Muscle oedema [Unknown]
  - Dizziness [Unknown]
  - Joint swelling [Unknown]
  - Back pain [Not Recovered/Not Resolved]
